FAERS Safety Report 4264558-8 (Version None)
Quarter: 2004Q1

REPORT INFORMATION
  Report Type: 
  Country: None (occurrence: None)
  Receive Date: 20040106
  Receipt Date: 19930910
  Transmission Date: 20041129
  Serious: Yes (Death, Life-Threatening, Hospitalization)
  Sender: FDA-Public Use
  Company Number: WAES 92110232

PATIENT
  Sex: Male
  Weight: 1 kg

DRUGS (4)
  1. DIAZEPAM [Concomitant]
     Dates: start: 19910116, end: 19910119
  2. INDOCIN [Suspect]
     Indication: PREMATURE LABOUR
     Route: 054
     Dates: start: 19910116, end: 19910119
  3. MAGNESIUM SULFATE [Concomitant]
     Dates: start: 19910116, end: 19910119
  4. RITODRINE [Concomitant]
     Dates: start: 19910116, end: 19910119

REACTIONS (6)
  - CAESAREAN SECTION [None]
  - CLEFT LIP AND PALATE [None]
  - MATERNAL DRUGS AFFECTING FOETUS [None]
  - PULMONARY DYSMATURITY SYNDROME [None]
  - RENAL FAILURE ACUTE [None]
  - RESPIRATORY FAILURE [None]
